FAERS Safety Report 14737855 (Version 4)
Quarter: 2018Q4

REPORT INFORMATION
  Report Type: Spontaneous
  Country: JP (occurrence: JP)
  Receive Date: 20180409
  Receipt Date: 20181126
  Transmission Date: 20190204
  Serious: Yes (Other)
  Sender: FDA-Public Use
  Company Number: JP-SA-2015SA079366

PATIENT
  Age: 42 Year
  Sex: Female

DRUGS (11)
  1. LENDORMIN [Concomitant]
     Active Substance: BROTIZOLAM
     Dosage: UNK UNK, UNK
     Route: 048
  2. ZOLPIDEM TARTRATE. [Suspect]
     Active Substance: ZOLPIDEM TARTRATE
     Dosage: 10 MG, QD
     Route: 048
  3. ZOLPIDEM TARTRATE. [Suspect]
     Active Substance: ZOLPIDEM TARTRATE
     Dosage: A HALVED TABLET AND A QUATERED TABLET
     Route: 048
  4. ZOLPIDEM TARTRATE. [Suspect]
     Active Substance: ZOLPIDEM TARTRATE
     Dosage: UNK
     Route: 048
  5. ZOLPIDEM TARTRATE. [Suspect]
     Active Substance: ZOLPIDEM TARTRATE
     Indication: PRODUCT USED FOR UNKNOWN INDICATION
     Dosage: UNK UNK,UNK
     Route: 048
     Dates: start: 201308
  6. SILECE [Concomitant]
     Active Substance: FLUNITRAZEPAM
     Dosage: UNK
     Route: 065
     Dates: start: 201809
  7. EURODIN [ESTAZOLAM] [Concomitant]
     Dosage: UNK, UNK
     Route: 048
  8. BELSOMRA [Concomitant]
     Active Substance: SUVOREXANT
     Dosage: UNK, UNK
     Route: 048
     Dates: start: 201308
  9. ZOLPIDEM TARTRATE. [Suspect]
     Active Substance: ZOLPIDEM TARTRATE
     Dosage: UNK, QD, 5-10 MG, ONCE DAILY
     Route: 048
  10. ZOLPIDEM TARTRATE. [Suspect]
     Active Substance: ZOLPIDEM TARTRATE
     Dosage: CUT INTO SMALL PIECES AND TOOK IT EVERY 30 MINUTES TO 1 HOUR
     Route: 048
  11. DEPAS [ETIZOLAM] [Concomitant]
     Active Substance: ETIZOLAM
     Dosage: UNK UNK, UNK
     Route: 048

REACTIONS (19)
  - Mental impairment [Not Recovered/Not Resolved]
  - Mastication disorder [Not Recovered/Not Resolved]
  - Somnolence [Not Recovered/Not Resolved]
  - Bruxism [Not Recovered/Not Resolved]
  - Intentional overdose [Unknown]
  - Hallucination [Unknown]
  - Depression [Unknown]
  - Anxiety [Not Recovered/Not Resolved]
  - Chills [Not Recovered/Not Resolved]
  - Facial spasm [Not Recovered/Not Resolved]
  - Malaise [Not Recovered/Not Resolved]
  - Diplopia [Unknown]
  - Psychiatric symptom [Not Recovered/Not Resolved]
  - Intentional product misuse [Unknown]
  - Delirium [Unknown]
  - Middle insomnia [Unknown]
  - Judgement impaired [Not Recovered/Not Resolved]
  - Schizophrenia [Unknown]
  - Vision blurred [Unknown]

NARRATIVE: CASE EVENT DATE: 2013
